FAERS Safety Report 6234968-8 (Version None)
Quarter: 2009Q2

REPORT INFORMATION
  Report Type: 
  Country: None (occurrence: None)
  Receive Date: 20090616
  Receipt Date: 20090608
  Transmission Date: 20091009
  Serious: Yes (Hospitalization)
  Sender: FDA-Public Use
  Company Number: ADR3212009 (DE-BFARM-09022412)

PATIENT
  Age: 85 Year
  Sex: Female

DRUGS (5)
  1. RAMIPRIL [Suspect]
     Indication: HYPERTONIA
     Dosage: 5 MG, ORAL
     Route: 048
     Dates: start: 20070101
  2. BELOC-ZOC COMP TABLET [Concomitant]
     Dosage: 95MG METOPROLOL/12.5 HCT
  3. ASPIRIN [Concomitant]
  4. CALCIUM [Concomitant]
  5. FOSAMAX [Concomitant]

REACTIONS (1)
  - PRESYNCOPE [None]
